FAERS Safety Report 4520062-0 (Version None)
Quarter: 2004Q4

REPORT INFORMATION
  Report Type: 
  Country: None (occurrence: None)
  Receive Date: 20041207
  Receipt Date: 20040930
  Transmission Date: 20050328
  Serious: Yes (Hospitalization, Other)
  Sender: FDA-Public Use
  Company Number: PHNU2004DE03382

PATIENT
  Age: 53 Year
  Sex: Female
  Weight: 55 kg

DRUGS (27)
  1. LUDIOMIL [Suspect]
     Dosage: 1 AMPOULE/DAY
     Route: 042
     Dates: start: 20021112, end: 20021114
  2. LUDIOMIL [Suspect]
     Dosage: 2 AMPOULE/DAY
     Route: 042
     Dates: start: 20021115, end: 20021117
  3. LUDIOMIL [Suspect]
     Dosage: 3 AMPOULE/DAY
     Route: 042
     Dates: start: 20021118, end: 20021119
  4. LUDIOMIL [Suspect]
     Dosage: 4 AMPOULE/DAY
     Route: 042
     Dates: start: 20021120, end: 20021124
  5. LUDIOMIL [Suspect]
     Dosage: 5 AMPOULE/DAY
     Route: 048
     Dates: start: 20021125, end: 20021202
  6. ANAFRANIL [Suspect]
     Indication: DEPRESSION
     Dosage: 37.5 MG, QD
     Route: 048
     Dates: start: 20030206, end: 20030216
  7. LUDIOMIL [Suspect]
     Indication: DEPRESSION
     Dosage: 150 MG/DAY
     Route: 048
     Dates: start: 20021202, end: 20030216
  8. TAXILAN [Suspect]
     Dosage: 100 TO 150 MG/DAY
     Route: 048
     Dates: start: 20030103, end: 20030217
  9. PANTOZOL [Suspect]
     Dosage: 20 TO 40 MG/DAY
     Route: 048
     Dates: start: 20021204, end: 20030217
  10. PANTOZOL [Suspect]
     Dosage: UNKNOWN
     Route: 048
     Dates: start: 20030305
  11. TAVOR [Concomitant]
     Dosage: 3 TO 4 MG/DAY
     Route: 048
     Dates: start: 20021105, end: 20021119
  12. TAVOR [Concomitant]
     Dosage: 2 TO 0.5 MG/DAY
     Route: 048
     Dates: start: 20021120, end: 20021204
  13. TAVOR [Concomitant]
     Dosage: 3 MG/DAY
     Route: 048
     Dates: start: 19890101, end: 20021104
  14. PARACETAMOL [Concomitant]
     Dosage: UNKNOWN
     Route: 048
     Dates: start: 19710101, end: 20030304
  15. VENLAFAXINE HCL [Concomitant]
     Dosage: 75 MG, BID
     Dates: start: 19890101, end: 20021104
  16. VENLAFAXINE HCL [Concomitant]
     Dosage: 150 MG/DAY
     Route: 048
     Dates: start: 20021105, end: 20021106
  17. VENLAFAXINE HCL [Concomitant]
     Dosage: 75 MG/DAY
     Route: 048
     Dates: start: 20021107, end: 20021111
  18. ZYPREXA [Concomitant]
     Dosage: 2.5 MG, BID
     Route: 048
     Dates: start: 19890101, end: 20021104
  19. ZYPREXA [Concomitant]
     Dosage: 7.5 MG/DAY
     Route: 048
     Dates: start: 20021105, end: 20021114
  20. KLIOGEST ^RHONE-POULENC^ [Concomitant]
     Dosage: 1 TAB/DAY
     Route: 048
     Dates: start: 20010101, end: 20021104
  21. ANAFRANIL [Suspect]
     Dosage: 25 MG/DAY
     Route: 048
     Dates: start: 20021230, end: 20030203
  22. ANAFRANIL [Suspect]
     Dosage: 50 MG/DAY
     Route: 048
     Dates: start: 20030204, end: 20030226
  23. ACC [Concomitant]
     Dosage: 1 TAB/DAY
     Route: 048
     Dates: start: 20030206, end: 20030217
  24. ULCOGANT                                /GFR/ [Concomitant]
     Dosage: 20 ML/DAY
     Route: 048
     Dates: start: 20030218, end: 20030304
  25. TRUXAL SUSPENSION [Concomitant]
     Dosage: 5 TO 1.5 ML/DAY
     Route: 048
     Dates: start: 20021118, end: 20021126
  26. TRUXAL [Concomitant]
     Dosage: 30 TO 90 MG/DAY
     Route: 048
     Dates: start: 20021125, end: 20030103
  27. TRUXAL [Concomitant]
     Dosage: 60 TO 30 MG/DAY
     Route: 048
     Dates: start: 20030104, end: 20030114

REACTIONS (5)
  - ALANINE AMINOTRANSFERASE INCREASED [None]
  - ASPARTATE AMINOTRANSFERASE INCREASED [None]
  - BLOOD ALKALINE PHOSPHATASE INCREASED [None]
  - GAMMA-GLUTAMYLTRANSFERASE INCREASED [None]
  - HEPATITIS ACUTE [None]
